FAERS Safety Report 14967662 (Version 2)
Quarter: 2018Q2

REPORT INFORMATION
  Report Type: Other
  Country: IE (occurrence: IE)
  Receive Date: 20180604
  Receipt Date: 20180621
  Transmission Date: 20180711
  Serious: Yes (Other)
  Sender: FDA-Public Use
  Company Number: IE-MACLEODS PHARMACEUTICALS US LTD-MAC2018014140

PATIENT

DRUGS (4)
  1. ACCUPRO [Concomitant]
     Active Substance: QUINAPRIL HYDROCHLORIDE
     Indication: HYPERTENSION
     Dosage: 20 MILLIGRAM
     Route: 048
     Dates: start: 20171005, end: 20180511
  2. MEMANTINE. [Suspect]
     Active Substance: MEMANTINE
     Indication: COGNITIVE DISORDER
     Dosage: 5MG INCREASED TO 10MG THEN TO 20MG EVERY TWO WEEKS
     Route: 048
     Dates: start: 20180313, end: 20180503
  3. CARDICOR [Concomitant]
     Active Substance: BISOPROLOL
     Indication: HYPERTENSION
     Dosage: 2.5 MILLIGRAM
     Route: 048
     Dates: start: 20170630, end: 20180511
  4. GALFER [Concomitant]
     Active Substance: IRON
     Indication: ANAEMIA
     Dosage: 305 MILLIGRAM
     Route: 048
     Dates: start: 20180130, end: 20180313

REACTIONS (1)
  - Liver injury [Recovered/Resolved]

NARRATIVE: CASE EVENT DATE: 20180502
